FAERS Safety Report 6108687-2 (Version None)
Quarter: 2009Q1

REPORT INFORMATION
  Report Type: 
  Country: None (occurrence: None)
  Receive Date: 20090305
  Receipt Date: 20090213
  Transmission Date: 20090719
  Serious: Yes (Other)
  Sender: FDA-Public Use
  Company Number: 20090047

PATIENT
  Age: 49 Year
  Sex: Female

DRUGS (5)
  1. VENOFER [Suspect]
     Indication: IRON DEFICIENCY ANAEMIA
     Dosage: 300MG; INTRAVENOUS, 20 MG/ML
     Route: 042
     Dates: start: 20090201, end: 20090201
  2. TAVEGYL [Suspect]
     Dosage: DOSAGE
  3. BELOK ZOK (METOPROLOL) [Concomitant]
  4. LISITRIL (LISINOPRIL) [Concomitant]
  5. ESTROGEN/PROGESTERONE [Concomitant]

REACTIONS (10)
  - ABDOMINAL DISCOMFORT [None]
  - ANAPHYLACTOID REACTION [None]
  - BRADYCARDIA [None]
  - BURNING SENSATION [None]
  - HYPOTENSION [None]
  - HYPOVOLAEMIA [None]
  - INFUSION RELATED REACTION [None]
  - INFUSION SITE URTICARIA [None]
  - NAUSEA [None]
  - SYNCOPE [None]
